FAERS Safety Report 5768219-5 (Version None)
Quarter: 2008Q2

REPORT INFORMATION
  Report Type: 
  Country: None (occurrence: None)
  Receive Date: 20080609
  Receipt Date: 20080527
  Transmission Date: 20081010
  Serious: Yes (Other)
  Sender: FDA-Public Use
  Company Number: 2008S1000186

PATIENT
  Age: 20 Year
  Sex: Male
  Weight: 80.0145 kg

DRUGS (1)
  1. ACITRETIN [Suspect]
     Indication: KERATOSIS FOLLICULAR
     Dosage: PO
     Route: 048
     Dates: start: 19990101

REACTIONS (3)
  - DRY MOUTH [None]
  - SALIVARY GLAND ENLARGEMENT [None]
  - SIALOADENITIS [None]
